FAERS Safety Report 25776700 (Version 1)
Quarter: 2025Q3

REPORT INFORMATION
  Report Type: Spontaneous
  Country: US (occurrence: US)
  Receive Date: 20250909
  Receipt Date: 20250909
  Transmission Date: 20251021
  Serious: No
  Sender: DOMPE FARMACEUTICI
  Company Number: US-FARMAPROD-202503-0848

PATIENT
  Sex: Female
  Weight: 51.26 kg

DRUGS (13)
  1. OXERVATE [Suspect]
     Active Substance: CENEGERMIN-BKBJ
     Indication: Neurotrophic keratopathy
     Route: 047
     Dates: start: 20230327, end: 20230522
  2. OXERVATE [Suspect]
     Active Substance: CENEGERMIN-BKBJ
     Route: 047
     Dates: start: 20250304
  3. OXERVATE [Suspect]
     Active Substance: CENEGERMIN-BKBJ
  4. CYCLOSPORINE [Concomitant]
     Active Substance: CYCLOSPORINE
  5. ALLEGRA ALLERGY [Concomitant]
     Active Substance: FEXOFENADINE HYDROCHLORIDE
  6. UBIQUINOL [Concomitant]
     Active Substance: UBIQUINOL
  7. FISH OIL\OMEGA-3 FATTY ACIDS [Concomitant]
     Active Substance: FISH OIL\OMEGA-3 FATTY ACIDS
  8. MULTIVITAMIN WOMEN 50 PLUS [Concomitant]
  9. LUTEIN;ZEAXANTHIN [Concomitant]
  10. FISH OIL-OMEGA-3-VIT D [Concomitant]
  11. TURMERIC ROOT [Concomitant]
  12. ACYCLOVIR [Concomitant]
     Active Substance: ACYCLOVIR
  13. REFRESH CLASSIC [Concomitant]
     Active Substance: POLYVINYL ALCOHOL\POVIDONE

REACTIONS (3)
  - Eye pain [Not Recovered/Not Resolved]
  - Eye irritation [Unknown]
  - Photophobia [Unknown]
